FAERS Safety Report 11265209 (Version 1)
Quarter: 2015Q3

REPORT INFORMATION
  Report Type: Spontaneous
  Country: JP (occurrence: JP)
  Receive Date: 20150713
  Receipt Date: 20150713
  Transmission Date: 20151125
  Serious: Yes (Other)
  Sender: FDA-Public Use
  Company Number: JP-PFIZER INC-2015227456

PATIENT
  Age: 5 Decade
  Sex: Male

DRUGS (1)
  1. HYDROCORTISONE. [Suspect]
     Active Substance: HYDROCORTISONE
     Indication: HYPOPITUITARISM
     Dosage: 30 MG, DAILY
     Route: 048

REACTIONS (2)
  - Biliary fistula [Recovering/Resolving]
  - Cholecystitis acute [Recovering/Resolving]
